FAERS Safety Report 5956658-9 (Version None)
Quarter: 2008Q4

REPORT INFORMATION
  Report Type: 
  Country: None (occurrence: None)
  Receive Date: 20081117
  Receipt Date: 20081117
  Transmission Date: 20090506
  Serious: No
  Sender: FDA-Public Use
  Company Number: None

PATIENT
  Age: 62 Year

DRUGS (1)
  1. HEPARIN [Suspect]
     Indication: ATRIAL FLUTTER
     Dosage: 25000 UNITS PER HOUR IV
     Route: 042
     Dates: start: 20080821, end: 20080824

REACTIONS (1)
  - THROMBOCYTOPENIA [None]
